FAERS Safety Report 11302072 (Version 1)
Quarter: 2015Q3

REPORT INFORMATION
  Report Type: Spontaneous
  Country: US (occurrence: None)
  Receive Date: 20150723
  Receipt Date: 20150723
  Transmission Date: 20151125
  Serious: Yes (Hospitalization)
  Sender: FDA-Public Use
  Company Number: None

PATIENT
  Age: 68 Year
  Sex: Male
  Weight: 70.76 kg

DRUGS (20)
  1. SILVER SULFATE [Concomitant]
  2. PANTOPRAZOLE [Concomitant]
     Active Substance: PANTOPRAZOLE SODIUM
  3. PREDNISONE. [Concomitant]
     Active Substance: PREDNISONE
  4. CEPHALEXIN. [Concomitant]
     Active Substance: CEPHALEXIN
  5. FLUDROCORTISONE [Concomitant]
     Active Substance: FLUDROCORTISONE
  6. TESTOSTERONE. [Concomitant]
     Active Substance: TESTOSTERONE
  7. INSULIN GLARGINE [Concomitant]
     Active Substance: INSULIN GLARGINE
  8. SPIRONOLACTONE. [Concomitant]
     Active Substance: SPIRONOLACTONE
  9. TACROLIMUS. [Concomitant]
     Active Substance: TACROLIMUS
  10. ROCALTROL [Concomitant]
     Active Substance: CALCITRIOL
  11. ASPIRIN. [Concomitant]
     Active Substance: ASPIRIN
  12. LANTUS [Concomitant]
     Active Substance: INSULIN GLARGINE
  13. POTASSIUM [Concomitant]
     Active Substance: POTASSIUM
  14. VALCYTE [Concomitant]
     Active Substance: VALGANCICLOVIR HYDROCHLORIDE
  15. NOVOLOG [Concomitant]
     Active Substance: INSULIN ASPART
  16. OXYCODONE [Concomitant]
     Active Substance: OXYCODONE
  17. MAG-OX [Concomitant]
     Active Substance: MAGNESIUM OXIDE
  18. URSODIOL. [Concomitant]
     Active Substance: URSODIOL
  19. HARVONI [Suspect]
     Active Substance: LEDIPASVIR\SOFOSBUVIR
     Indication: HEPATITIS C
     Dosage: 90/400MG DAILY
     Route: 048
     Dates: start: 20150319, end: 20150610
  20. ERGOCALCIFEROL. [Concomitant]
     Active Substance: ERGOCALCIFEROL

REACTIONS (2)
  - Arthralgia [None]
  - Femoral neck fracture [None]

NARRATIVE: CASE EVENT DATE: 20150422
